FAERS Safety Report 5796063-1 (Version None)
Quarter: 2008Q2

REPORT INFORMATION
  Report Type: 
  Country: None (occurrence: None)
  Receive Date: 20080626
  Receipt Date: 20080616
  Transmission Date: 20081010
  Serious: No
  Sender: FDA-Public Use
  Company Number: TPA2008A00493

PATIENT
  Age: 55 Year
  Sex: Female
  Weight: 111.1313 kg

DRUGS (3)
  1. ACTOS [Suspect]
     Indication: TYPE 2 DIABETES MELLITUS
     Dosage: 15 MG, 1 IN 1 D, PER ORAL : 30 MG, 1 IN 1 D, PER ORAL
     Route: 048
     Dates: start: 20071029, end: 20080303
  2. ACTOS [Suspect]
     Indication: TYPE 2 DIABETES MELLITUS
     Dosage: 15 MG, 1 IN 1 D, PER ORAL : 30 MG, 1 IN 1 D, PER ORAL
     Route: 048
     Dates: start: 20080303, end: 20080327
  3. LANTUS [Concomitant]

REACTIONS (1)
  - OEDEMA PERIPHERAL [None]
